FAERS Safety Report 10696240 (Version 1)
Quarter: 2015Q1

REPORT INFORMATION
  Report Type: Spontaneous
  Country: US (occurrence: None)
  Receive Date: 20150106
  Receipt Date: 20150106
  Transmission Date: 20150721
  Serious: No
  Sender: FDA-Public Use
  Company Number: None

PATIENT
  Age: 34 Year
  Sex: Male
  Weight: 96.16 kg

DRUGS (2)
  1. FINASTERIDE. [Suspect]
     Active Substance: FINASTERIDE
     Indication: ALOPECIA
     Route: 048
  2. FINASTERIDE. [Suspect]
     Active Substance: FINASTERIDE
     Indication: ANDROGENETIC ALOPECIA
     Route: 048

REACTIONS (13)
  - Loss of libido [None]
  - Insomnia [None]
  - Vision blurred [None]
  - Penile size reduced [None]
  - Tremor [None]
  - Depression [None]
  - Genital paraesthesia [None]
  - Erectile dysfunction [None]
  - Suicidal ideation [None]
  - Frustration [None]
  - Arthralgia [None]
  - Fear [None]
  - Panic attack [None]
